FAERS Safety Report 6620414-9 (Version None)
Quarter: 2010Q1

REPORT INFORMATION
  Report Type: 
  Country: None (occurrence: None)
  Receive Date: 20100309
  Receipt Date: 20100224
  Transmission Date: 20100710
  Serious: Yes (Other)
  Sender: FDA-Public Use
  Company Number: US-PFIZER INC-2010010159

PATIENT
  Sex: Female
  Weight: 45.351 kg

DRUGS (6)
  1. GABAPENTIN [Suspect]
     Indication: HEADACHE
     Dosage: 200 MG IN THE MORNING, 200 MG IN THE AFTERNOON, 300 MG AT BEDTIME
     Dates: start: 20100101, end: 20100101
  2. LEVOXYL [Concomitant]
     Dosage: UNK
  3. PREVACID [Concomitant]
     Dosage: UNK
  4. CLONAZEPAM [Concomitant]
     Dosage: UNK
  5. CRESTOR [Concomitant]
     Dosage: UNK
  6. POLYETHYLENE GLYCOL [Concomitant]
     Dosage: UNK

REACTIONS (4)
  - ALLERGIC SINUSITIS [None]
  - FOOD ALLERGY [None]
  - HYPERSENSITIVITY [None]
  - SINUSITIS [None]
